FAERS Safety Report 17622663 (Version 1)
Quarter: 2020Q2

REPORT INFORMATION
  Report Type: Spontaneous
  Country: US (occurrence: US)
  Receive Date: 20200403
  Receipt Date: 20200403
  Transmission Date: 20200713
  Serious: Yes (Hospitalization, Other)
  Sender: FDA-Public Use
  Company Number: US-SA-2020SA080983

PATIENT
  Age: 67 Year
  Sex: Female

DRUGS (12)
  1. VICTOZA [Concomitant]
     Active Substance: LIRAGLUTIDE
  2. PHENERGAN [Concomitant]
     Active Substance: PROMETHAZINE HYDROCHLORIDE
     Indication: NAUSEA
     Dosage: UNK UNK, PRN
  3. XARELTO [Concomitant]
     Active Substance: RIVAROXABAN
  4. LOMOTIL [LOPERAMIDE HYDROCHLORIDE] [Concomitant]
     Indication: DIARRHOEA
     Dosage: UNK UNK, PRN
  5. PLAVIX [Concomitant]
     Active Substance: CLOPIDOGREL BISULFATE
  6. TRESIBA [Concomitant]
     Active Substance: INSULIN DEGLUDEC
  7. TORSEMIDE. [Concomitant]
     Active Substance: TORSEMIDE
     Indication: PERIPHERAL SWELLING
     Dosage: UNK, PRN
  8. PRALUENT [Suspect]
     Active Substance: ALIROCUMAB
     Indication: BLOOD TRIGLYCERIDES ABNORMAL
     Dosage: 75 MG, QOW
     Dates: start: 2019
  9. JARDIANCE [Concomitant]
     Active Substance: EMPAGLIFLOZIN
  10. DEXILANT [Concomitant]
     Active Substance: DEXLANSOPRAZOLE
  11. SPIRONOLACTONE. [Concomitant]
     Active Substance: SPIRONOLACTONE
     Indication: PERIPHERAL SWELLING
     Dosage: UNK, PRN
  12. COMPAZINE [Concomitant]
     Active Substance: PROCHLORPERAZINE MALEATE
     Indication: NAUSEA
     Dosage: UNK UNK, PRN

REACTIONS (6)
  - Peripheral endarterectomy [Unknown]
  - Gangrene [Unknown]
  - Osteomyelitis [Unknown]
  - Road traffic accident [Unknown]
  - Pyrexia [Unknown]
  - Carotid endarterectomy [Unknown]

NARRATIVE: CASE EVENT DATE: 201903
